FAERS Safety Report 9272571 (Version 1)
Quarter: 2013Q2

REPORT INFORMATION
  Report Type: Spontaneous
  Country: FR (occurrence: FR)
  Receive Date: 20130506
  Receipt Date: 20130506
  Transmission Date: 20140414
  Serious: Yes (Death, Hospitalization)
  Sender: FDA-Public Use
  Company Number: FR-GLAXOSMITHKLINE-B0888029A

PATIENT
  Age: 69 Year
  Sex: Male

DRUGS (4)
  1. ARIXTRA [Suspect]
     Indication: THROMBOPHLEBITIS
     Dosage: 7.5MG PER DAY
     Route: 058
     Dates: start: 20121007, end: 20121126
  2. VALACICLOVIR [Concomitant]
     Dosage: 500MG PER DAY
     Route: 048
     Dates: start: 20121015
  3. AMOXICILLIN SODIUM [Concomitant]
     Dosage: 1G PER DAY
     Dates: start: 20121117
  4. NEURONTIN [Concomitant]
     Dosage: 100MG PER DAY
     Route: 048
     Dates: start: 20121015

REACTIONS (13)
  - Shock haemorrhagic [Fatal]
  - Altered state of consciousness [Unknown]
  - Coma [Unknown]
  - Shock [Unknown]
  - Tachycardia [Unknown]
  - Anaemia [Unknown]
  - Retroperitoneal haematoma [Unknown]
  - Peritoneal haematoma [Unknown]
  - Disseminated intravascular coagulation [Unknown]
  - General physical health deterioration [Unknown]
  - Hyperlactacidaemia [Unknown]
  - Acidosis [Unknown]
  - Incorrect drug administration duration [Unknown]
